FAERS Safety Report 5615279-8 (Version None)
Quarter: 2008Q1

REPORT INFORMATION
  Report Type: 
  Country: None (occurrence: None)
  Receive Date: 20080201
  Receipt Date: 20080118
  Transmission Date: 20080703
  Serious: Yes (Hospitalization, Other)
  Sender: FDA-Public Use
  Company Number: CERZ-1000034

PATIENT
  Age: 32 Year
  Sex: Male

DRUGS (1)
  1. CEREZYME [Suspect]
     Indication: GAUCHER'S DISEASE
     Dosage: 4000 U, Q2W, INTRAVENOUS; 2000 U, Q2W

REACTIONS (3)
  - DRUG DOSE OMISSION [None]
  - SPLEEN DISORDER [None]
  - TREATMENT NONCOMPLIANCE [None]
